FAERS Safety Report 14692216 (Version 6)
Quarter: 2018Q2

REPORT INFORMATION
  Report Type: Report from Study
  Country: None (occurrence: ES)
  Receive Date: 20180329
  Receipt Date: 20180629
  Transmission Date: 20180711
  Serious: Yes (Hospitalization, Other)
  Sender: FDA-Public Use
  Company Number: ES-ABBVIE-17K-144-2124998-00

PATIENT
  Age: 72 Year
  Sex: Male

DRUGS (10)
  1. DUODOPA [Interacting]
     Active Substance: CARBIDOPA\LEVODOPA
     Dosage: DOSAGE DECREASED, DECREASED FROM 60% TO 40%
     Route: 050
     Dates: start: 2017, end: 20180206
  2. METRONIDAZOLE. [Concomitant]
     Active Substance: METRONIDAZOLE
     Indication: WOUND INFECTION
  3. DUODOPA [Interacting]
     Active Substance: CARBIDOPA\LEVODOPA
     Route: 050
     Dates: start: 2018, end: 2018
  4. DUODOPA [Suspect]
     Active Substance: CARBIDOPA\LEVODOPA
     Indication: PARKINSON^S DISEASE
     Route: 050
     Dates: start: 20170619, end: 2017
  5. DUODOPA [Interacting]
     Active Substance: CARBIDOPA\LEVODOPA
     Dosage: DUODOPA^S DOSAGE WAS DRASTICALLY DECREASED ON 40% OF THE DOSE
     Route: 050
     Dates: start: 2017, end: 2017
  6. MIRAPEXIN [Concomitant]
     Active Substance: PRAMIPEXOLE
     Indication: ADJUVANT THERAPY
     Route: 048
     Dates: start: 201709
  7. DUODOPA [Interacting]
     Active Substance: CARBIDOPA\LEVODOPA
     Route: 050
     Dates: start: 2017
  8. SPECTRACEF [Interacting]
     Active Substance: CEFDITOREN PIVOXIL
     Indication: WOUND INFECTION
     Route: 048
     Dates: end: 20180223
  9. DUODOPA [Interacting]
     Active Substance: CARBIDOPA\LEVODOPA
     Route: 050
     Dates: start: 201802, end: 2018
  10. DUODOPA [Interacting]
     Active Substance: CARBIDOPA\LEVODOPA
     Route: 050
     Dates: start: 2018

REACTIONS (25)
  - Pulmonary oedema [Unknown]
  - Infected skin ulcer [Recovered/Resolved]
  - Condition aggravated [Not Recovered/Not Resolved]
  - Wound infection [Recovering/Resolving]
  - Gait disturbance [Recovering/Resolving]
  - Stoma site erythema [Recovering/Resolving]
  - Fungal infection [Unknown]
  - Stoma site discomfort [Not Recovered/Not Resolved]
  - Protein total decreased [Unknown]
  - On and off phenomenon [Recovering/Resolving]
  - Dyskinesia [Not Recovered/Not Resolved]
  - Weight decreased [Unknown]
  - Disorientation [Unknown]
  - Dysphagia [Unknown]
  - Malaise [Recovered/Resolved]
  - Pruritus [Recovered/Resolved]
  - Wound complication [Unknown]
  - Infusion site extravasation [Unknown]
  - Skin lesion [Recovering/Resolving]
  - Drug ineffective [Not Recovered/Not Resolved]
  - Hypokinesia [Unknown]
  - Stoma site discharge [Unknown]
  - General physical health deterioration [Unknown]
  - Freezing phenomenon [Not Recovered/Not Resolved]
  - Hallucination [Recovering/Resolving]

NARRATIVE: CASE EVENT DATE: 2017
